FAERS Safety Report 10784178 (Version 2)
Quarter: 2015Q1

REPORT INFORMATION
  Report Type: Report from Study
  Country: ES (occurrence: ES)
  Receive Date: 20150211
  Receipt Date: 20150327
  Transmission Date: 20150721
  Serious: Yes (Hospitalization)
  Sender: FDA-Public Use
  Company Number: ES-ROCHE-1518651

PATIENT
  Age: 67 Year
  Sex: Male
  Weight: 90.5 kg

DRUGS (5)
  1. BEVACIZUMAB [Suspect]
     Active Substance: BEVACIZUMAB
     Indication: COLORECTAL CANCER METASTATIC
     Dosage: ON 02/DEC/2014, LAST DOSE (450 MG) PRIOR TO SAE (22ND CYCLE)?ON 13/JAN/2015,LAST DOSE (450 MG) PRIOR
     Route: 042
     Dates: start: 20131128, end: 20150113
  2. 5-FU [Suspect]
     Active Substance: FLUOROURACIL
     Dosage: ON 02/DEC/2014, LAST DOSE (4700 MG) PRIOR TO SAE (22ND CYCLE?ON 13/JAN/2015, LAST DOSE (4700 MG) PRI
     Route: 042
     Dates: start: 20131128, end: 20150113
  3. FOLINIC ACID [Suspect]
     Active Substance: LEUCOVORIN
     Indication: COLORECTAL CANCER METASTATIC
     Dosage: ON 02/DEC/2014, LAST DOSE (798 MG) PRIOR TO SAE (22ND CYCLE)?ON 13/JAN/2015, LAST DOSE (798MG) PRIOR
     Route: 042
     Dates: start: 20131128, end: 20150113
  4. OXALIPLATIN. [Suspect]
     Active Substance: OXALIPLATIN
     Indication: COLORECTAL CANCER METASTATIC
     Dosage: ON 02/DEC/2014, LAST DOSE (170 MG) PRIOR TO SAE (22ND CYCLE)?ON 13/JAN/2015, LAST DOSE (170 MG) PRIO
     Route: 042
     Dates: start: 20131128, end: 20150113
  5. 5-FU [Suspect]
     Active Substance: FLUOROURACIL
     Indication: COLORECTAL CANCER METASTATIC
     Dosage: ON 02/DEC/2014, LAST DOSE (798 MG) PRIOR TO SAE (22ND CYCLE)?ON 13/JAN/2015, LAST DOSE (798 MG) PRIO
     Route: 040
     Dates: start: 20131128, end: 20150113

REACTIONS (2)
  - Pulmonary embolism [Recovered/Resolved with Sequelae]
  - Respiratory failure [Recovered/Resolved with Sequelae]

NARRATIVE: CASE EVENT DATE: 20141215
